FAERS Safety Report 6206092-1 (Version None)
Quarter: 2009Q2

REPORT INFORMATION
  Report Type: 
  Country: None (occurrence: None)
  Receive Date: 20090528
  Receipt Date: 20090526
  Transmission Date: 20091009
  Serious: Yes (Other)
  Sender: FDA-Public Use
  Company Number: US-BRISTOL-MYERS SQUIBB COMPANY-14637086

PATIENT
  Sex: Male

DRUGS (3)
  1. CISPLATIN [Suspect]
  2. ETOPOPHOS PRESERVATIVE FREE [Suspect]
  3. TEKTURNA [Suspect]

REACTIONS (1)
  - BLOOD PRESSURE DECREASED [None]
